FAERS Safety Report 15127704 (Version 1)
Quarter: 2018Q3

REPORT INFORMATION
  Report Type: Spontaneous
  Country: IE (occurrence: IE)
  Receive Date: 20180710
  Receipt Date: 20180710
  Transmission Date: 20181010
  Serious: Yes (Death, Other)
  Sender: FDA-Public Use
  Company Number: IE-B.I. PHARMACEUTICALS,INC./RIDGEFIELD-2018-BI-035531

PATIENT
  Age: 79 Year
  Sex: Male

DRUGS (1)
  1. TAMSULOSINA [Suspect]
     Active Substance: TAMSULOSIN HYDROCHLORIDE
     Indication: LOWER URINARY TRACT SYMPTOMS
     Route: 065

REACTIONS (9)
  - Metastases to spinal cord [Unknown]
  - Urosepsis [Fatal]
  - Symptom recurrence [Unknown]
  - Prostate cancer [Unknown]
  - Product use in unapproved indication [Unknown]
  - Nocturia [Unknown]
  - Anal incontinence [Unknown]
  - Off label use [Unknown]
  - Spinal cord compression [Unknown]
